FAERS Safety Report 7928929-8 (Version None)
Quarter: 2011Q4

REPORT INFORMATION
  Report Type: 
  Country: None (occurrence: None)
  Receive Date: 20111118
  Receipt Date: 20111108
  Transmission Date: 20120403
  Serious: Yes (Disabling)
  Sender: FDA-Public Use
  Company Number: US-ROCHE-1009920

PATIENT
  Sex: Female

DRUGS (3)
  1. AVASTIN [Suspect]
     Indication: NON-SMALL CELL LUNG CANCER METASTATIC
     Route: 042
     Dates: start: 20110810, end: 20110921
  2. CARBOPLATIN [Concomitant]
     Indication: LUNG NEOPLASM MALIGNANT
     Dosage: ANC 6
     Route: 042
     Dates: start: 20110608, end: 20110921
  3. ALIMTA [Concomitant]
     Indication: LUNG NEOPLASM MALIGNANT
     Dosage: 500
     Route: 042
     Dates: start: 20110427, end: 20110921

REACTIONS (1)
  - OSTEONECROSIS [None]
